FAERS Safety Report 4647496-8 (Version None)
Quarter: 2005Q2

REPORT INFORMATION
  Report Type: 
  Country: None (occurrence: None)
  Receive Date: 20050428
  Receipt Date: 20050418
  Transmission Date: 20051028
  Serious: Yes (Hospitalization, Other)
  Sender: FDA-Public Use
  Company Number: US-JNJFOC-20050404455

PATIENT
  Age: 53 Year
  Sex: Female

DRUGS (2)
  1. ULTRACET [Suspect]
     Indication: ARTHRITIS
     Route: 065
  2. LEXAPRO [Concomitant]

REACTIONS (1)
  - SUBARACHNOID HAEMORRHAGE [None]
